FAERS Safety Report 7754417-8 (Version None)
Quarter: 2011Q3

REPORT INFORMATION
  Report Type: 
  Country: None (occurrence: None)
  Receive Date: 20110915
  Receipt Date: 20110906
  Transmission Date: 20111222
  Serious: Yes (Other)
  Sender: FDA-Public Use
  Company Number: US-ELI_LILLY_AND_COMPANY-US201109003550

PATIENT
  Age: 74 Year
  Sex: Female

DRUGS (3)
  1. EFFIENT [Suspect]
     Dosage: 10 MG, QD
     Dates: start: 20110830, end: 20110831
  2. EFFIENT [Suspect]
     Dosage: 60 MG, QD
     Dates: start: 20110829, end: 20110829
  3. ASPIRIN [Concomitant]
     Indication: ANTICOAGULANT THERAPY

REACTIONS (1)
  - EMBOLIC STROKE [None]
